FAERS Safety Report 14958264 (Version 6)
Quarter: 2019Q1

REPORT INFORMATION
  Report Type: Spontaneous
  Country: ES (occurrence: ES)
  Receive Date: 20180531
  Receipt Date: 20190315
  Transmission Date: 20190417
  Serious: Yes (Other)
  Sender: FDA-Public Use
  Company Number: ES-SAMSUNG BIOEPIS-SB-2018-06612

PATIENT
  Age: 60 Year
  Sex: Male

DRUGS (13)
  1. ADALIMUMAB [Suspect]
     Active Substance: ADALIMUMAB
     Indication: INFLAMMATORY BOWEL DISEASE
     Dosage: 40 MG, WEEKLY (QW)
     Route: 065
     Dates: start: 201410
  2. MESALAZINE [Suspect]
     Active Substance: MESALAMINE
     Indication: INFLAMMATORY BOWEL DISEASE
     Dosage: UNKNOWN
     Route: 065
  3. INFLIXIMAB [Suspect]
     Active Substance: INFLIXIMAB
     Indication: INFLAMMATORY BOWEL DISEASE
     Dosage: UNKNOWN DOSE
     Route: 042
  4. IMUREL [Suspect]
     Active Substance: AZATHIOPRINE SODIUM
     Indication: INFLAMMATORY BOWEL DISEASE
     Dosage: UNKNOWN DOSE
     Route: 065
  5. USTEKINUMAB [Concomitant]
     Active Substance: USTEKINUMAB
     Indication: FISTULA
     Dosage: 180MG LOADING DOSE
     Route: 058
     Dates: start: 2014
  6. USTEKINUMAB [Concomitant]
     Active Substance: USTEKINUMAB
     Indication: IMMUNODEFICIENCY COMMON VARIABLE
     Dosage: 90 MG, EV 8 WEEKS
     Route: 058
     Dates: start: 2014
  7. USTEKINUMAB [Concomitant]
     Active Substance: USTEKINUMAB
     Indication: PERFORATION
     Dosage: UNKNOWN
     Route: 065
  8. USTEKINUMAB [Concomitant]
     Active Substance: USTEKINUMAB
     Indication: SMALL INTESTINAL OBSTRUCTION
  9. INFLIXIMAB [Suspect]
     Active Substance: INFLIXIMAB
     Indication: IMMUNODEFICIENCY COMMON VARIABLE
     Route: 065
  10. FILGRASTIM [Suspect]
     Active Substance: FILGRASTIM
     Indication: INFLAMMATORY BOWEL DISEASE
     Dosage: UNKNOWN
     Route: 065
  11. METHYLPREDNISOLONE SODIUM SUCCINATE. [Suspect]
     Active Substance: METHYLPREDNISOLONE SODIUM SUCCINATE
     Indication: INFLAMMATORY BOWEL DISEASE
     Dosage: UNKNOWN
     Route: 065
  12. INFLIXIMAB [Suspect]
     Active Substance: INFLIXIMAB
     Indication: GASTROINTESTINAL FISTULA
  13. USTEKINUMAB [Concomitant]
     Active Substance: USTEKINUMAB
     Indication: INFLAMMATORY BOWEL DISEASE

REACTIONS (9)
  - Cytomegalovirus enteritis [Recovered/Resolved]
  - Intestinal fistula [Recovered/Resolved]
  - Small intestinal obstruction [Recovered/Resolved]
  - Drug ineffective [Unknown]
  - Intestinal perforation [Recovered/Resolved]
  - Periumbilical abscess [Recovered/Resolved]
  - Off label use [Unknown]
  - Gastroenteritis clostridial [Recovered/Resolved]
  - Campylobacter gastroenteritis [Recovered/Resolved]

NARRATIVE: CASE EVENT DATE: 201410
